FAERS Safety Report 10510858 (Version 1)
Quarter: 2014Q3

REPORT INFORMATION
  Report Type: Spontaneous
  Country: US (occurrence: None)
  Receive Date: 20140915
  Receipt Date: 20140915
  Transmission Date: 20150326
  Serious: Yes (Other)
  Sender: FDA-Public Use
  Company Number: 2013-US-005026

PATIENT
  Age: 54 Year
  Sex: Male

DRUGS (3)
  1. AMLODIPINE (AMLODIPINE BESILATE) [Concomitant]
  2. XYREM [Suspect]
     Active Substance: SODIUM OXYBATE
     Indication: INSOMNIA
     Route: 048
     Dates: start: 201308, end: 201308
  3. CLONAZEPAM (CLONAZEPAM) [Concomitant]

REACTIONS (4)
  - Condition aggravated [None]
  - Sleep apnoea syndrome [None]
  - Insomnia [None]
  - Serum serotonin decreased [None]

NARRATIVE: CASE EVENT DATE: 2013
